FAERS Safety Report 8564940-4 (Version None)
Quarter: 2012Q3

REPORT INFORMATION
  Report Type: 
  Country: None (occurrence: None)
  Receive Date: 20120803
  Receipt Date: 20120727
  Transmission Date: 20120928
  Serious: Yes (Other)
  Sender: FDA-Public Use
  Company Number: FR-PFIZER INC-2012162290

PATIENT
  Age: 30 Year
  Sex: Female
  Weight: 55 kg

DRUGS (3)
  1. ATGAM [Suspect]
     Indication: APLASIA PURE RED CELL
     Dosage: 2400 MG, 1X/DAY
     Route: 042
     Dates: start: 20120425, end: 20120428
  2. PREDNISOLONE [Concomitant]
     Indication: ANAEMIA HAEMOLYTIC AUTOIMMUNE
     Dosage: 60 MG, 1X/DAY
     Route: 042
     Dates: start: 20120425
  3. NEORAL [Concomitant]
     Indication: BONE MARROW FAILURE
     Dosage: 100 MG, 2X/DAY
     Route: 048
     Dates: start: 20120425

REACTIONS (3)
  - INFUSION RELATED REACTION [None]
  - CEREBRAL VENOUS THROMBOSIS [None]
  - URTICARIA [None]
